FAERS Safety Report 14958699 (Version 1)
Quarter: 2018Q2

REPORT INFORMATION
  Report Type: Spontaneous
  Country: FR (occurrence: FR)
  Receive Date: 20180531
  Receipt Date: 20180531
  Transmission Date: 20180711
  Serious: Yes (Life-Threatening)
  Sender: FDA-Public Use
  Company Number: FR-TEVA-2018-FR-898910

PATIENT
  Age: 55 Year
  Sex: Female

DRUGS (4)
  1. ALKERAN [Suspect]
     Active Substance: MELPHALAN
     Indication: TRANSPLANT
     Route: 041
     Dates: start: 20161024
  2. CYTARABINE. [Suspect]
     Active Substance: CYTARABINE
     Indication: TRANSPLANT
     Route: 041
     Dates: start: 20161024
  3. ETOPOSIDE. [Suspect]
     Active Substance: ETOPOSIDE
     Indication: TRANSPLANT
     Route: 041
     Dates: start: 20161024
  4. BICNU [Suspect]
     Active Substance: CARMUSTINE
     Indication: TRANSPLANT
     Route: 041
     Dates: start: 20161024

REACTIONS (1)
  - Venoocclusive disease [Not Recovered/Not Resolved]

NARRATIVE: CASE EVENT DATE: 201612
